FAERS Safety Report 9714862 (Version 2)
Quarter: 2013Q4

REPORT INFORMATION
  Report Type: Report from Study
  Country: US (occurrence: US)
  Receive Date: 20131126
  Receipt Date: 20131126
  Transmission Date: 20140711
  Serious: Yes (Other)
  Sender: FDA-Public Use
  Company Number: US-US-EMD SERONO, INC.-7246577

PATIENT
  Sex: Female

DRUGS (1)
  1. REBIF [Suspect]
     Indication: MULTIPLE SCLEROSIS
     Route: 058
     Dates: start: 20130626

REACTIONS (4)
  - Abortion spontaneous [Recovered/Resolved]
  - Influenza like illness [Not Recovered/Not Resolved]
  - Maternal exposure timing unspecified [Recovered/Resolved]
  - Incorrect drug administration duration [Unknown]
